FAERS Safety Report 6426203-2 (Version None)
Quarter: 2009Q4

REPORT INFORMATION
  Report Type: 
  Country: None (occurrence: None)
  Receive Date: 20091104
  Receipt Date: 20091027
  Transmission Date: 20100525
  Serious: Yes (Other)
  Sender: FDA-Public Use
  Company Number: BR-JNJFOC-20091100032

PATIENT
  Age: 42 Year
  Sex: Female
  Weight: 120 kg

DRUGS (1)
  1. HALOPERIDOL DECANOATE [Suspect]
     Indication: SCHIZOPHRENIA
     Route: 030
     Dates: end: 20090801

REACTIONS (2)
  - MUSCLE TWITCHING [None]
  - WEIGHT INCREASED [None]
